FAERS Safety Report 8469433-0 (Version None)
Quarter: 2012Q2

REPORT INFORMATION
  Report Type: 
  Country: None (occurrence: None)
  Receive Date: 20120626
  Receipt Date: 20120625
  Transmission Date: 20120825
  Serious: Yes (Other)
  Sender: FDA-Public Use
  Company Number: JP-PFIZER INC-2012098896

PATIENT
  Age: 63 Year
  Sex: Male

DRUGS (4)
  1. AMOBAN [Concomitant]
  2. LYRICA [Suspect]
     Dosage: 150 MG, 1X/DAY
     Route: 048
     Dates: start: 20111222
  3. PURSENNID [Concomitant]
  4. DEPAS [Concomitant]

REACTIONS (1)
  - BREAST MASS [None]
